FAERS Safety Report 6035148-1 (Version None)
Quarter: 2009Q1

REPORT INFORMATION
  Report Type: 
  Country: None (occurrence: None)
  Receive Date: 20090112
  Receipt Date: 20090105
  Transmission Date: 20090719
  Serious: No
  Sender: FDA-Public Use
  Company Number: US-B.I. PHARMACEUTICALS,INC./RIDGEFIELD-2008-BP-17213BP

PATIENT
  Sex: Male

DRUGS (8)
  1. CATAPRES-TTS-1 [Suspect]
     Indication: HYPERTENSION
     Dosage: 1.0714MG
     Route: 061
     Dates: start: 20070122
  2. NORVASC [Concomitant]
  3. GENUVIA [Concomitant]
  4. RAMIPRIL [Concomitant]
  5. ACIPHEX [Concomitant]
  6. COREG [Concomitant]
  7. TRAMADOL HCL [Concomitant]
  8. PRAVASTATIN [Concomitant]

REACTIONS (1)
  - BLOOD PRESSURE INADEQUATELY CONTROLLED [None]
